FAERS Safety Report 13089165 (Version 1)
Quarter: 2017Q1

REPORT INFORMATION
  Report Type: Report from Study
  Country: US (occurrence: US)
  Receive Date: 20170105
  Receipt Date: 20170105
  Transmission Date: 20170428
  Serious: Yes (Death)
  Sender: FDA-Public Use
  Company Number: US-ASTRAZENECA-2015SF26355

PATIENT
  Sex: Male

DRUGS (17)
  1. ALLERGY MEDICATION [Concomitant]
     Active Substance: DIPHENHYDRAMINE HYDROCHLORIDE
     Indication: PRURITUS
     Dosage: 2 TABS ONCE A DAY AS NEEDED
     Route: 048
     Dates: start: 20150928
  2. HM VITAMIN D3 [Concomitant]
     Indication: PROPHYLAXIS
     Route: 048
     Dates: start: 20150928
  3. VITAMIN B1 [Concomitant]
     Active Substance: THIAMINE HYDROCHLORIDE
     Route: 048
     Dates: start: 20150928
  4. ASPIRIN. [Concomitant]
     Active Substance: ASPIRIN
     Route: 048
     Dates: start: 20150928
  5. AMLACTIN [Concomitant]
     Active Substance: AMMONIUM LACTATE
     Dosage: DALLY BEFORE WRAPPING LEGS
     Dates: start: 20150928
  6. NYSTATIN. [Concomitant]
     Active Substance: NYSTATIN
     Dosage: 100000 UNIT/GM, THIN LAYER TO BLL ARM TWICE A DAY
     Dates: start: 20151118
  7. LEVOTHYROXINE SODIUM. [Concomitant]
     Active Substance: LEVOTHYROXINE SODIUM
     Dosage: 1 TABLET 1HR BEFORE BREAKFAST
     Route: 048
     Dates: start: 20150928
  8. FUROSEMIDE. [Concomitant]
     Active Substance: FUROSEMIDE
     Dosage: 1 TABLET WITH BREAKFAST AND 1 TABLET  AT 3PM FOR CHF
     Route: 048
     Dates: start: 20150928
  9. POTASSIUM CHLORIDE CRYS ER [Concomitant]
     Active Substance: POTASSIUM CHLORIDE
     Route: 048
     Dates: start: 20150928
  10. PANTOPRAZOLE SODIUM. [Concomitant]
     Active Substance: PANTOPRAZOLE SODIUM
     Dosage: 1 TAB 30 MINS BOFORA BREAKFAST
     Route: 048
     Dates: start: 20150928
  11. DAILY MULTI 50+ [Concomitant]
     Route: 048
     Dates: start: 20150928
  12. AMINOFEN [Concomitant]
     Indication: PAIN
     Dosage: 2 TABS 2-3 TIMES A DAY
     Route: 048
     Dates: start: 20150928
  13. SYMBICORT [Suspect]
     Active Substance: BUDESONIDE\FORMOTEROL FUMARATE DIHYDRATE
     Dosage: 160/4.5 UG, TWO PUFFS TWO TIMES A DAY
     Route: 055
     Dates: start: 20150928
  14. METOPROLOL TARTRATE. [Concomitant]
     Active Substance: METOPROLOL TARTRATE
     Route: 048
     Dates: start: 20150928
  15. FOLIC ACID. [Concomitant]
     Active Substance: FOLIC ACID
     Route: 048
     Dates: start: 20150928
  16. PROAIR HFA [Concomitant]
     Active Substance: ALBUTEROL SULFATE
     Indication: DYSPNOEA
     Dosage: 2 PUFFS EVERY 6 HR AS NEEDED
     Route: 055
     Dates: start: 20150928
  17. ALBUTEROL SULFATE. [Concomitant]
     Active Substance: ALBUTEROL SULFATE
     Indication: DYSPNOEA
     Dosage: 2.5 MG/3ML, VIAL VIA NEBULIZER MACHINE EVERY 6 HR AS NEEDED
     Dates: start: 20150928

REACTIONS (2)
  - Rash [Unknown]
  - Death [Fatal]
